FAERS Safety Report 8131361 (Version 6)
Quarter: 2012Q4

REPORT INFORMATION
  Report Type: 
  Country: US (occurrence: US)
  Receive Date: 20110912
  Receipt Date: 20121211
  Transmission Date: 20130627
  Serious: Yes (Hospitalization)
  Sender: FDA-Public Use
  Company Number: US-GLAXOSMITHKLINE-A0897701A

PATIENT
  Age: 58 Year
  Sex: Male

DRUGS (1)
  1. AVANDIA [Suspect]
     Indication: TYPE 2 DIABETES MELLITUS
     Dosage: 4MG Twice per day
     Route: 048
     Dates: start: 19991201, end: 20060804

REACTIONS (7)
  - Cardiac failure congestive [Not Recovered/Not Resolved]
  - Hypoglycaemia [Unknown]
  - Myocardial ischaemia [Unknown]
  - Ischaemic cardiomyopathy [Unknown]
  - Arteriosclerosis [Unknown]
  - Pain [Unknown]
  - Dyspnoea [Unknown]
